FAERS Safety Report 8521862-2 (Version None)
Quarter: 2012Q3

REPORT INFORMATION
  Report Type: 
  Country: None (occurrence: None)
  Receive Date: 20120719
  Receipt Date: 20120508
  Transmission Date: 20120928
  Serious: No
  Sender: FDA-Public Use
  Company Number: US-BRISTOL-MYERS SQUIBB COMPANY-16577579

PATIENT
  Age: 42 Year
  Sex: Female
  Weight: 51 kg

DRUGS (1)
  1. YERVOY [Suspect]
     Indication: MALIGNANT MELANOMA

REACTIONS (3)
  - ERYTHEMA [None]
  - GRANULOMA [None]
  - LYMPHADENOPATHY [None]
